FAERS Safety Report 9444926 (Version 1)
Quarter: 2013Q3

REPORT INFORMATION
  Report Type: Spontaneous
  Country: DE (occurrence: DE)
  Receive Date: 20130807
  Receipt Date: 20130807
  Transmission Date: 20140515
  Serious: Yes (Hospitalization, Other)
  Sender: FDA-Public Use
  Company Number: DE-RANBAXY-2013RR-71926

PATIENT
  Age: 22 Year
  Sex: Male

DRUGS (5)
  1. CITALOPRAM [Suspect]
     Indication: ANTIDEPRESSANT THERAPY
     Dosage: 20 MG/DAY
     Route: 065
  2. CITALOPRAM [Suspect]
     Indication: ANTIDEPRESSANT THERAPY
     Dosage: 40 MG/DAY
     Route: 065
  3. CITALOPRAM [Suspect]
     Indication: ANTIDEPRESSANT THERAPY
     Dosage: 60 MG/DAY
     Route: 065
  4. SERTRALINE [Suspect]
     Indication: ANTIDEPRESSANT THERAPY
     Dosage: UNK
     Route: 065
  5. MIRTAZAPINE [Concomitant]
     Indication: ANTIDEPRESSANT THERAPY
     Dosage: UNK
     Route: 065

REACTIONS (2)
  - Psychotic disorder [Recovered/Resolved]
  - Overdose [Recovered/Resolved]
